FAERS Safety Report 14535321 (Version 3)
Quarter: 2018Q1

REPORT INFORMATION
  Report Type: Spontaneous
  Country: CA (occurrence: CA)
  Receive Date: 20180215
  Receipt Date: 20180228
  Transmission Date: 20180509
  Serious: Yes (Other)
  Sender: FDA-Public Use
  Company Number: CA-PFIZER INC-2018061182

PATIENT
  Age: 54 Year
  Sex: Female
  Weight: 85 kg

DRUGS (6)
  1. LIPITOR [Suspect]
     Active Substance: ATORVASTATIN CALCIUM
     Dosage: 40 MG, 1X/DAY
     Route: 048
     Dates: start: 2013
  2. ATACAND [Concomitant]
     Active Substance: CANDESARTAN CILEXETIL
     Dosage: 4 MG, 1X/DAY
     Route: 048
     Dates: start: 2013
  3. HUMIRA [Concomitant]
     Active Substance: ADALIMUMAB
     Dosage: 40 MG, CYCLIC (EVERY 2 WEEKS)
     Route: 058
     Dates: start: 201702
  4. CIPRALEX [Concomitant]
     Active Substance: ESCITALOPRAM OXALATE
     Dosage: 20 MG, 1X/DAY
     Route: 048
     Dates: start: 2012
  5. VICTOZA [Concomitant]
     Active Substance: LIRAGLUTIDE
     Dosage: 1.8 MG, 1X/DAY
     Route: 048
     Dates: start: 2013
  6. METFORMIN [Concomitant]
     Active Substance: METFORMIN HYDROCHLORIDE
     Dosage: 500 MG, 2X/DAY
     Route: 048
     Dates: start: 2013

REACTIONS (7)
  - Fall [Unknown]
  - Rheumatoid arthritis [Unknown]
  - Vision blurred [Unknown]
  - Road traffic accident [Unknown]
  - Fatigue [Unknown]
  - Sinus pain [Unknown]
  - Nausea [Unknown]

NARRATIVE: CASE EVENT DATE: 2016
